FAERS Safety Report 7026627-9 (Version None)
Quarter: 2010Q4

REPORT INFORMATION
  Report Type: 
  Country: None (occurrence: None)
  Receive Date: 20101004
  Receipt Date: 20100925
  Transmission Date: 20110411
  Serious: No
  Sender: FDA-Public Use
  Company Number: KR-JNJFOC-20100905502

PATIENT
  Sex: Male

DRUGS (1)
  1. DURAGESIC-100 [Suspect]
     Indication: PROCEDURAL PAIN
     Dosage: 1,2 OR 3 PATCHES
     Route: 062

REACTIONS (5)
  - DRUG ADMINISTRATION ERROR [None]
  - DRUG INEFFECTIVE [None]
  - NAUSEA [None]
  - OFF LABEL USE [None]
  - VOMITING [None]
